FAERS Safety Report 4598103-4 (Version None)
Quarter: 2005Q1

REPORT INFORMATION
  Report Type: 
  Country: None (occurrence: None)
  Receive Date: 20050302
  Receipt Date: 20050216
  Transmission Date: 20050727
  Serious: Yes (Hospitalization)
  Sender: FDA-Public Use
  Company Number: 2005-02-1079

PATIENT
  Age: 15 Year
  Sex: Female
  Weight: 44 kg

DRUGS (5)
  1. CLARITIN REDITABS [Suspect]
     Indication: RHINITIS ALLERGIC
     Dosage: 10 MG ORAL
     Route: 048
     Dates: start: 20050201, end: 20050201
  2. DEPAKENE TABLETS [Concomitant]
  3. NELBON [Concomitant]
  4. TELMIN [Concomitant]
  5. CLOBAZAM [Concomitant]

REACTIONS (3)
  - COMA [None]
  - HYPOTHERMIA [None]
  - SOMNOLENCE [None]
